FAERS Safety Report 16757227 (Version 3)
Quarter: 2020Q2

REPORT INFORMATION
  Report Type: Report from Study
  Country: DE (occurrence: DE)
  Receive Date: 20190829
  Receipt Date: 20200402
  Transmission Date: 20200713
  Serious: No
  Sender: FDA-Public Use
  Company Number: DE-BIOGEN-2019BI00779860

PATIENT
  Sex: Female

DRUGS (1)
  1. TECFIDERA [Suspect]
     Active Substance: DIMETHYL FUMARATE
     Indication: PRODUCT USED FOR UNKNOWN INDICATION
     Dosage: MAINTENANCE DOSE
     Route: 048
     Dates: start: 20160203, end: 201902

REACTIONS (4)
  - Headache [Recovered/Resolved]
  - Dry skin [Recovered/Resolved]
  - Gastritis [Recovered/Resolved]
  - Gingival injury [Not Recovered/Not Resolved]
